FAERS Safety Report 5975229-1 (Version None)
Quarter: 2008Q4

REPORT INFORMATION
  Report Type: 
  Country: None (occurrence: None)
  Receive Date: 20081202
  Receipt Date: 20080610
  Transmission Date: 20090506
  Serious: No
  Sender: FDA-Public Use
  Company Number: US-BAYER-200812399BCC

PATIENT
  Age: 19 Year
  Sex: Female
  Weight: 47 kg

DRUGS (2)
  1. MIDOL [Suspect]
     Indication: DYSMENORRHOEA
     Dosage: AS USED: 220 MG  UNIT DOSE: 220 MG
     Route: 048
     Dates: start: 20080501
  2. MIDOL [Suspect]
     Dosage: AS USED: 220 MG  UNIT DOSE: 220 MG
     Route: 048
     Dates: start: 20080610

REACTIONS (1)
  - DYSMENORRHOEA [None]
